FAERS Safety Report 25024690 (Version 1)
Quarter: 2025Q1

REPORT INFORMATION
  Report Type: Spontaneous
  Country: US (occurrence: None)
  Receive Date: 20250228
  Receipt Date: 20250228
  Transmission Date: 20250408
  Serious: Yes (Hospitalization)
  Sender: FDA-CTU
  Company Number: None

PATIENT
  Age: 30 Year
  Sex: Male
  Weight: 112.5 kg

DRUGS (3)
  1. RISPERIDONE [Suspect]
     Active Substance: RISPERIDONE
     Indication: Intrusive thoughts
     Dates: start: 20250227, end: 20250227
  2. ROPINIROLE [Suspect]
     Active Substance: ROPINIROLE
  3. MELATONIN [Concomitant]
     Active Substance: MELATONIN

REACTIONS (3)
  - Wrong patient received product [None]
  - Wrong product administered [None]
  - Unevaluable event [None]

NARRATIVE: CASE EVENT DATE: 20250227
